FAERS Safety Report 17493610 (Version 1)
Quarter: 2020Q1

REPORT INFORMATION
  Report Type: Spontaneous
  Country: US (occurrence: US)
  Receive Date: 20200221
  Receipt Date: 20200221
  Transmission Date: 20200409
  Serious: No
  Sender: FDA-Public Use
  Company Number: None

PATIENT
  Age: 60 Year
  Sex: Male

DRUGS (2)
  1. INBRIJA [Concomitant]
     Active Substance: LEVODOPA
  2. CARB/LEVO [Suspect]
     Active Substance: CARBIDOPA\LEVODOPA
     Indication: PARKINSON^S DISEASE
     Dosage: ?          OTHER DOSE:10/100;?
     Route: 048

REACTIONS (1)
  - Dermatitis [None]

NARRATIVE: CASE EVENT DATE: 20200213
